FAERS Safety Report 12432796 (Version 1)
Quarter: 2016Q2

REPORT INFORMATION
  Report Type: Spontaneous
  Country: JP (occurrence: JP)
  Receive Date: 20160603
  Receipt Date: 20160603
  Transmission Date: 20160815
  Serious: Yes (Death, Other)
  Sender: FDA-Public Use
  Company Number: JP-CELGENEUS-JPN-2015092072

PATIENT
  Age: 71 Year
  Sex: Female

DRUGS (1)
  1. REVLIMID [Suspect]
     Active Substance: LENALIDOMIDE
     Indication: PLASMA CELL MYELOMA
     Dosage: 20 MILLIGRAM
     Route: 048
     Dates: start: 20141015, end: 20160229

REACTIONS (5)
  - Plasma cell myeloma [Fatal]
  - Infection [Fatal]
  - Platelet count decreased [Recovered/Resolved]
  - General physical health deterioration [Fatal]
  - Nausea [Recovered/Resolved]

NARRATIVE: CASE EVENT DATE: 20150226
